FAERS Safety Report 21336335 (Version 1)
Quarter: 2022Q3

REPORT INFORMATION
  Report Type: Spontaneous
  Country: US (occurrence: US)
  Receive Date: 20220915
  Receipt Date: 20220915
  Transmission Date: 20221026
  Serious: No
  Sender: FDA-Public Use
  Company Number: US-GLAXOSMITHKLINE-USCH2022033080

PATIENT
  Age: 65 Year
  Sex: Female

DRUGS (2)
  1. ABREVA [Suspect]
     Active Substance: DOCOSANOL
     Indication: Oral herpes
     Dosage: USED 5 TIMES A DAY
     Dates: start: 20220904
  2. ABREVA [Suspect]
     Active Substance: DOCOSANOL
     Indication: Blister

REACTIONS (1)
  - Incorrect product administration duration [Unknown]
